FAERS Safety Report 21414789 (Version 1)
Quarter: 2022Q4

REPORT INFORMATION
  Report Type: Spontaneous
  Country: FR (occurrence: FR)
  Receive Date: 20221006
  Receipt Date: 20221006
  Transmission Date: 20230113
  Serious: Yes (Hospitalization)
  Sender: FDA-Public Use
  Company Number: None

PATIENT
  Age: 83 Year
  Sex: Female

DRUGS (8)
  1. XARELTO [Suspect]
     Active Substance: RIVAROXABAN
     Indication: Product used for unknown indication
     Route: 048
     Dates: start: 202206, end: 202208
  2. CHLOROQUINE [Suspect]
     Active Substance: CHLOROQUINE
     Indication: Porphyria
     Dosage: 1CP MARDI ET 1CP VENDREDI
     Route: 048
     Dates: start: 202206, end: 202208
  3. HYDROCHLOROTHIAZIDE\IRBESARTAN [Suspect]
     Active Substance: HYDROCHLOROTHIAZIDE\IRBESARTAN
     Indication: Hypertension
     Route: 048
     Dates: end: 202208
  4. COLCHICINE [Suspect]
     Active Substance: COLCHICINE
     Indication: Chondrocalcinosis
     Dosage: 0.5MG 3/SEMAINE
     Route: 048
     Dates: start: 202206, end: 202208
  5. SOTALOL HYDROCHLORIDE [Suspect]
     Active Substance: SOTALOL HYDROCHLORIDE
     Indication: Hypertension
     Route: 048
     Dates: end: 202208
  6. AMLODIPINE [Suspect]
     Active Substance: AMLODIPINE BESYLATE
     Indication: Hypertension
     Dosage: 1 DF, QD
     Route: 048
     Dates: end: 202208
  7. NEFOPAM HYDROCHLORIDE [Concomitant]
     Active Substance: NEFOPAM HYDROCHLORIDE
  8. LANSOPRAZOLE [Concomitant]
     Active Substance: LANSOPRAZOLE

REACTIONS (5)
  - Bicytopenia [Recovering/Resolving]
  - Hepatocellular injury [Recovering/Resolving]
  - Diarrhoea [Recovered/Resolved]
  - Acute kidney injury [Recovered/Resolved]
  - Electrocardiogram QT prolonged [Recovering/Resolving]

NARRATIVE: CASE EVENT DATE: 20220601
